FAERS Safety Report 8467887-7 (Version None)
Quarter: 2012Q2

REPORT INFORMATION
  Report Type: 
  Country: None (occurrence: None)
  Receive Date: 20120626
  Receipt Date: 20120625
  Transmission Date: 20120825
  Serious: Yes (Other)
  Sender: FDA-Public Use
  Company Number: CL-BAYER-2012-061551

PATIENT
  Age: 35 Year
  Sex: Female

DRUGS (3)
  1. NITROFURANTOIN [Interacting]
     Indication: URINARY TRACT INFECTION
  2. ACTRON COMPUESTO [Interacting]
     Indication: URINARY TRACT INFECTION
  3. AVELOX [Suspect]
     Indication: URINARY TRACT INFECTION

REACTIONS (11)
  - SWELLING FACE [None]
  - FEELING HOT [None]
  - PARAESTHESIA [None]
  - HYPOAESTHESIA [None]
  - SKIN WARM [None]
  - DYSPNOEA [None]
  - HYPERSENSITIVITY [None]
  - ERYTHEMA [None]
  - RASH MACULAR [None]
  - DYSSTASIA [None]
  - HYPERTENSION [None]
